FAERS Safety Report 8910525 (Version 1)
Quarter: 2012Q4

REPORT INFORMATION
  Report Type: 
  Country: PT (occurrence: PT)
  Receive Date: 20121114
  Receipt Date: 20121114
  Transmission Date: 20130627
  Serious: Yes (Other)
  Sender: FDA-Public Use
  Company Number: PT-PFIZER INC-2012282184

PATIENT
  Sex: Female

DRUGS (5)
  1. LYRICA [Suspect]
     Indication: SCIATICA
     Dosage: 50 mg, 1x/day
     Route: 048
     Dates: start: 201201, end: 201201
  2. LYRICA [Suspect]
     Dosage: 50 mg daily
     Route: 048
     Dates: start: 201206
  3. LYRICA [Suspect]
     Dosage: 100mg daily
     Route: 048
  4. LYRICA [Suspect]
     Dosage: 150mg daily
     Route: 048
  5. LYRICA [Suspect]
     Dosage: 200mg daily
     Route: 048

REACTIONS (6)
  - Haematuria [Not Recovered/Not Resolved]
  - White blood cells urine positive [Not Recovered/Not Resolved]
  - Confusional state [Recovered/Resolved]
  - Dysarthria [Recovered/Resolved]
  - Red blood cell count increased [Recovered/Resolved]
  - White blood cell count increased [Not Recovered/Not Resolved]
